FAERS Safety Report 5684016-3 (Version None)
Quarter: 2008Q1

REPORT INFORMATION
  Report Type: 
  Country: None (occurrence: None)
  Receive Date: 20080328
  Receipt Date: 20080325
  Transmission Date: 20080703
  Serious: Yes (Life-Threatening)
  Sender: FDA-Public Use
  Company Number: US-ASTRAZENECA-2008UW05980

PATIENT
  Sex: Female

DRUGS (1)
  1. TOPROL-XL [Suspect]
     Dosage: 2-3 PILLS PER DAY
     Route: 048

REACTIONS (1)
  - HEART RATE DECREASED [None]
